FAERS Safety Report 12489866 (Version 1)
Quarter: 2016Q2

REPORT INFORMATION
  Report Type: Spontaneous
  Country: US (occurrence: US)
  Receive Date: 20160622
  Receipt Date: 20160622
  Transmission Date: 20160815
  Serious: Yes (Other)
  Sender: FDA-Public Use
  Company Number: US-JNJFOC-20160609856

PATIENT
  Age: 68 Year
  Sex: Female
  Weight: 108.86 kg

DRUGS (3)
  1. LOSARTAN. [Concomitant]
     Active Substance: LOSARTAN
     Route: 065
  2. HCTZ [Concomitant]
     Active Substance: HYDROCHLOROTHIAZIDE
     Route: 065
  3. INVOKAMET [Suspect]
     Active Substance: CANAGLIFLOZIN\METFORMIN HYDROCHLORIDE
     Indication: TYPE 2 DIABETES MELLITUS
     Dosage: 150/500MG
     Route: 048
     Dates: start: 201604

REACTIONS (6)
  - Ill-defined disorder [Not Recovered/Not Resolved]
  - Abdominal discomfort [Unknown]
  - Nervousness [Not Recovered/Not Resolved]
  - Pruritus [Unknown]
  - Lung infection [Not Recovered/Not Resolved]
  - Nausea [Unknown]

NARRATIVE: CASE EVENT DATE: 201604
